FAERS Safety Report 4859691-3 (Version None)
Quarter: 2005Q4

REPORT INFORMATION
  Report Type: 
  Country: None (occurrence: None)
  Receive Date: 20051215
  Receipt Date: 20051209
  Transmission Date: 20060501
  Serious: Yes (Hospitalization)
  Sender: FDA-Public Use
  Company Number: 2005166010

PATIENT
  Age: 41 Year
  Sex: Male

DRUGS (1)
  1. ROGAINE [Suspect]
     Dosage: TOPICAL
     Route: 061
     Dates: start: 20051128, end: 20051204

REACTIONS (4)
  - CARDIAC ENZYMES INCREASED [None]
  - CHEST PAIN [None]
  - DYSPEPSIA [None]
  - ELECTROCARDIOGRAM ABNORMAL [None]
